FAERS Safety Report 20617782 (Version 1)
Quarter: 2022Q1

REPORT INFORMATION
  Report Type: Spontaneous
  Country: US (occurrence: US)
  Receive Date: 20220321
  Receipt Date: 20220321
  Transmission Date: 20220423
  Serious: Yes (Other)
  Sender: FDA-Public Use
  Company Number: US-PFIZER INC-2021616096

PATIENT
  Age: 71 Year
  Sex: Female
  Weight: 63.5 kg

DRUGS (5)
  1. PREGABALIN [Suspect]
     Active Substance: PREGABALIN
     Indication: Neuropathy peripheral
     Dosage: 50 MG, 2X/DAY
  2. PREGABALIN [Suspect]
     Active Substance: PREGABALIN
     Dosage: 50 MG, 3X/DAY
  3. PREGABALIN [Suspect]
     Active Substance: PREGABALIN
     Dosage: 75 MG
     Dates: start: 2020
  4. PREGABALIN [Suspect]
     Active Substance: PREGABALIN
     Dosage: 150 MG, 3X/DAY
     Route: 048
  5. PREGABALIN [Suspect]
     Active Substance: PREGABALIN
     Dosage: UNK

REACTIONS (12)
  - Neuropathy peripheral [Unknown]
  - Condition aggravated [Unknown]
  - Fibromyalgia [Unknown]
  - Pain [Unknown]
  - Hypoaesthesia [Unknown]
  - Oral discomfort [Unknown]
  - Electric shock sensation [Unknown]
  - Skin fissures [Unknown]
  - Fall [Unknown]
  - Diplopia [Unknown]
  - Feeling abnormal [Unknown]
  - Insomnia [Unknown]
